FAERS Safety Report 22134874 (Version 4)
Quarter: 2023Q2

REPORT INFORMATION
  Report Type: Other
  Country: US (occurrence: None)
  Receive Date: 20230324
  Receipt Date: 20230523
  Transmission Date: 20230721
  Serious: Yes (Other)
  Sender: FDA-Public Use
  Company Number: US-ROCHE-2782074

PATIENT
  Age: 70 Year
  Sex: Female
  Weight: 59.928 kg

DRUGS (37)
  1. XOLAIR [Suspect]
     Active Substance: OMALIZUMAB
     Indication: Chronic spontaneous urticaria
     Dosage: DATE OF TREATMENT: 25/APR/2023 AND 15/MAY/2023
     Route: 058
     Dates: start: 2009
  2. XOLAIR [Suspect]
     Active Substance: OMALIZUMAB
     Indication: Urticaria chronic
     Route: 058
     Dates: start: 2019
  3. XOLAIR [Suspect]
     Active Substance: OMALIZUMAB
     Dosage: 2 SHOTS, 1 IN EACH ARM
     Route: 058
     Dates: start: 2019
  4. XOLAIR [Suspect]
     Active Substance: OMALIZUMAB
     Dosage: ONE SHOT IN EACH ARM PER DOSE
     Route: 058
     Dates: start: 20200617
  5. XOLAIR [Suspect]
     Active Substance: OMALIZUMAB
     Route: 058
     Dates: start: 2012
  6. XOLAIR [Suspect]
     Active Substance: OMALIZUMAB
     Dosage: LAST INJECTION DATE: 17/JUN/2022
     Route: 058
     Dates: start: 2022
  7. DEXAMETHASONE SODIUM PHOSPHATE [Concomitant]
     Active Substance: DEXAMETHASONE SODIUM PHOSPHATE
     Dosage: 0.1 % EYE DROPS
  8. COLCHICINE [Concomitant]
     Active Substance: COLCHICINE
  9. DICYCLOMINE [Concomitant]
     Active Substance: DICYCLOMINE HYDROCHLORIDE
     Dosage: 20 MG TABLET
  10. EPINEPHRINE [Concomitant]
     Active Substance: EPINEPHRINE
     Dosage: 0.3 MG/0.3 ML INJECTION, AUTO-INJECTOR
  11. ESTRING [Concomitant]
     Active Substance: ESTRADIOL
     Dosage: 2 MG (7.5 MCG/24 HOUR) VAGINAL RING
  12. FLUCONAZOLE [Concomitant]
     Active Substance: FLUCONAZOLE
     Dosage: 150 MG TABLET
  13. FLUTICASONE PROPIONATE [Concomitant]
     Active Substance: FLUTICASONE PROPIONATE
     Indication: Hypersensitivity
     Dosage: 50 MCG/ACTUATION NASAL SPRAY,SUSPENSION (OTC), 2 SQUIRT(S) IN EACH NOSTRIL CD (DAILY) (AIM AWAY FROM
     Route: 045
  14. FLUZONE [Concomitant]
     Active Substance: INFLUENZA A VIRUS A/CALIFORNIA/7/2009 X-179A (H1N1) ANTIGEN (FORMALDEHYDE INACTIVATED)\INFLUENZA A V
     Dosage: HIGH-DOSE QUAD 2020-21 (PF) 240 MCG/0.7 ML IM SYRINGE
  15. FUROSEMIDE [Concomitant]
     Active Substance: FUROSEMIDE
     Dosage: 40 MG TABLET
  16. ACETAMINOPHEN\HYDROCODONE [Concomitant]
     Active Substance: ACETAMINOPHEN\HYDROCODONE
     Dosage: HYDROCODONE 5 MG-ACETAMINOPHEN 325 MG TABLET
  17. KETOROLAC [Concomitant]
     Active Substance: KETOROLAC TROMETHAMINE
     Dosage: 10 MG TABLET
  18. LEVOTHYROXINE [Concomitant]
     Active Substance: LEVOTHYROXINE
     Dosage: 150 MCG TABLET
  19. MONUROL [Concomitant]
     Active Substance: FOSFOMYCIN TROMETHAMINE
     Dosage: 3 GRAM ORAL PACKET
  20. NIFEDIPINE [Concomitant]
     Active Substance: NIFEDIPINE
     Dosage: ER TABLET,EXTENDED RELEASE 30 MG
  21. PREDNISONE [Concomitant]
     Active Substance: PREDNISONE
     Dosage: TABLET 10 MG
  22. SYNTHROID [Concomitant]
     Active Substance: LEVOTHYROXINE SODIUM
     Route: 048
  23. ZYRTEC [Concomitant]
     Active Substance: CETIRIZINE HYDROCHLORIDE
     Indication: Hypersensitivity
     Route: 048
  24. BENADRYL [Concomitant]
     Active Substance: DIPHENHYDRAMINE HYDROCHLORIDE
     Indication: Hypersensitivity
     Route: 048
  25. AZELASTINE [Concomitant]
     Active Substance: AZELASTINE
     Indication: Hypersensitivity
     Dosage: 137 MCG (0.1 %) NASAL SPRAY AEROSOL, 2 SQUIRT(S) IN EACH NOSTRIL BEDTIME
     Route: 045
  26. ROMOSOZUMAB [Concomitant]
     Active Substance: ROMOSOZUMAB
  27. METOPROLOL [Concomitant]
     Active Substance: METOPROLOL
  28. OLMESARTAN [Concomitant]
     Active Substance: OLMESARTAN
  29. GABAPENTIN [Concomitant]
     Active Substance: GABAPENTIN
  30. FLONASE [Concomitant]
     Active Substance: FLUTICASONE PROPIONATE
  31. AZELASTINE [Concomitant]
     Active Substance: AZELASTINE
     Dosage: 2 SQ IN EA, NOSTRIL BID.
  32. BETAMETHASONE DIPROPIONATE [Concomitant]
     Active Substance: BETAMETHASONE DIPROPIONATE
     Dosage: 0.05 % TOPICAL CREAM, 1 APPLICATION(S) ON THE SKIN AS DIRECTED APPLY AFFECTED AREA ON BACK AND NOT O
  33. CYCLOSPORINE [Concomitant]
     Active Substance: CYCLOSPORINE
  34. LEVOFLOXACIN [Concomitant]
     Active Substance: LEVOFLOXACIN
  35. ATORVASTATIN [Concomitant]
     Active Substance: ATORVASTATIN
  36. NITROFURANTOIN [Concomitant]
     Active Substance: NITROFURANTOIN
     Dosage: NITRO-BID 2 % TRANSDERMAL OINTMENT
  37. NAPROXEN [Concomitant]
     Active Substance: NAPROXEN

REACTIONS (25)
  - Spinal compression fracture [Not Recovered/Not Resolved]
  - Food allergy [Not Recovered/Not Resolved]
  - Essential hypertension [Unknown]
  - Scleroderma [Unknown]
  - Sjogren^s syndrome [Unknown]
  - Dermatitis atopic [Recovered/Resolved]
  - Urticaria [Recovered/Resolved]
  - Dermatitis [Recovered/Resolved]
  - Pain [Not Recovered/Not Resolved]
  - Eye contusion [Not Recovered/Not Resolved]
  - Anaphylactic reaction [Recovered/Resolved]
  - Ventricular tachycardia [Not Recovered/Not Resolved]
  - Fall [Unknown]
  - Osteopenia [Not Recovered/Not Resolved]
  - Osteoporosis [Not Recovered/Not Resolved]
  - Hypertension [Not Recovered/Not Resolved]
  - Chondrocalcinosis [Not Recovered/Not Resolved]
  - COVID-19 [Recovered/Resolved]
  - Body height decreased [Not Recovered/Not Resolved]
  - Discomfort [Not Recovered/Not Resolved]
  - Needle issue [Unknown]
  - Nasopharyngitis [Recovered/Resolved]
  - Vitamin B12 deficiency [Unknown]
  - Iron deficiency [Unknown]
  - Off label use [Unknown]

NARRATIVE: CASE EVENT DATE: 20160801
